FAERS Safety Report 10151301 (Version 1)
Quarter: 2014Q2

REPORT INFORMATION
  Report Type: Spontaneous
  Country: US (occurrence: US)
  Receive Date: 20140502
  Receipt Date: 20140502
  Transmission Date: 20141212
  Serious: No
  Sender: FDA-Public Use
  Company Number: US-ASTRAZENECA-2013SE60715

PATIENT
  Age: 73 Year
  Sex: Female

DRUGS (2)
  1. PRILOSEC OTC [Suspect]
     Route: 048
     Dates: start: 20130728, end: 20130728
  2. CARDIOVASCULAR SYSTEM DRUGS [Concomitant]
     Dosage: UNKNOWN

REACTIONS (4)
  - Gastrooesophageal reflux disease [Recovered/Resolved]
  - Chest pain [Recovered/Resolved]
  - Dyspepsia [Recovered/Resolved]
  - Dyspepsia [Recovered/Resolved]
